FAERS Safety Report 17201992 (Version 1)
Quarter: 2019Q4

REPORT INFORMATION
  Report Type: Spontaneous
  Country: DE (occurrence: DE)
  Receive Date: 20191226
  Receipt Date: 20191226
  Transmission Date: 20200122
  Serious: Yes (Other)
  Sender: FDA-Public Use
  Company Number: DE-BFARM-18014422

PATIENT
  Age: 81 Year
  Sex: Male

DRUGS (28)
  1. ALLOPURINOL. [Suspect]
     Active Substance: ALLOPURINOL
     Indication: PRODUCT USED FOR UNKNOWN INDICATION
     Dosage: 300 MG, QD
     Route: 065
     Dates: start: 2014
  2. ENALAPRIL [Concomitant]
     Active Substance: ENALAPRIL
     Dosage: UNK UNK, UNK
  3. VALSARTAN. [Suspect]
     Active Substance: VALSARTAN
     Indication: PRODUCT USED FOR UNKNOWN INDICATION
     Dosage: 160 MG, QD
     Route: 065
     Dates: start: 2014
  4. AMLODIPINE [Suspect]
     Active Substance: AMLODIPINE BESYLATE
     Dosage: 5 MG, QD
     Route: 065
     Dates: start: 2018
  5. NOVORAPID [Suspect]
     Active Substance: INSULIN ASPART
     Dosage: UNK UNK, UNK
     Route: 065
     Dates: start: 2014
  6. TAMSULOSIN HYDROCHLORIDE. [Suspect]
     Active Substance: TAMSULOSIN HYDROCHLORIDE
     Indication: PRODUCT USED FOR UNKNOWN INDICATION
     Dosage: 0.4 MG, QD
     Route: 065
     Dates: start: 2014
  7. AMLODIPINE [Suspect]
     Active Substance: AMLODIPINE BESYLATE
     Dosage: 5 MG, Q12H
     Route: 065
     Dates: start: 2018
  8. METAMIZOLE SODIUM [Suspect]
     Active Substance: METAMIZOLE SODIUM
     Indication: PRODUCT USED FOR UNKNOWN INDICATION
     Dosage: AS NEEDED (2 TO 3 TIMES DAILY 20 TO 30 DROPS);
     Route: 065
  9. NOVORAPID [Suspect]
     Active Substance: INSULIN ASPART
     Indication: PRODUCT USED FOR UNKNOWN INDICATION
     Dosage: IN THE MORNING, AT NOON AND IN THE EVENING BETWEEN 8 AND 40 IU BEFORE THE MEAL
     Route: 065
  10. NOVORAPID [Suspect]
     Active Substance: INSULIN ASPART
     Dosage: IN THE MORNNING 24, NOON 18, IN THE EVENING : 20
     Route: 065
  11. LANTUS [Suspect]
     Active Substance: INSULIN GLARGINE
     Indication: PRODUCT USED FOR UNKNOWN INDICATION
     Dosage: 20 IU, QD
     Route: 065
     Dates: start: 2014
  12. VALSARTAN. [Suspect]
     Active Substance: VALSARTAN
     Indication: PRODUCT USED FOR UNKNOWN INDICATION
     Dosage: 160 MG, QD
     Route: 065
     Dates: start: 2014
  13. CANDESARTAN ZENTIVA [Concomitant]
     Active Substance: CANDESARTAN CILEXETIL
     Dosage: UNK UNK, UNK
  14. CANDESARTAN. [Suspect]
     Active Substance: CANDESARTAN
     Indication: PRODUCT USED FOR UNKNOWN INDICATION
     Dosage: 16 MG, QD
     Route: 065
     Dates: start: 20181009
  15. ALLOPURINOL. [Suspect]
     Active Substance: ALLOPURINOL
     Dosage: 100 MG, QD
     Route: 065
     Dates: start: 2018
  16. ACETYLSALICYLIC ACID [Suspect]
     Active Substance: ASPIRIN
     Indication: PRODUCT USED FOR UNKNOWN INDICATION
     Dosage: 100 MG, QD
     Route: 065
     Dates: start: 2014
  17. VALSARTAN. [Suspect]
     Active Substance: VALSARTAN
     Dosage: UNK UNK, UNK
     Route: 065
     Dates: start: 20180903, end: 20180909
  18. SIMVASTATIN. [Suspect]
     Active Substance: SIMVASTATIN
     Indication: PRODUCT USED FOR UNKNOWN INDICATION
     Dosage: 40 MG, QD
     Route: 065
     Dates: start: 2014
  19. TORASEMIDE [Suspect]
     Active Substance: TORSEMIDE
     Dosage: 20 MG, BID
     Route: 065
     Dates: start: 2014
  20. AMLODIPINE [Suspect]
     Active Substance: AMLODIPINE BESYLATE
     Indication: PRODUCT USED FOR UNKNOWN INDICATION
     Dosage: 5 MG, QD
     Route: 065
     Dates: start: 2014
  21. LANTUS [Suspect]
     Active Substance: INSULIN GLARGINE
     Dosage: 24 IU, QD
     Route: 065
     Dates: start: 2018
  22. VALSARTAN. [Suspect]
     Active Substance: VALSARTAN
     Dosage: UNK UNK, UNK
     Route: 065
     Dates: start: 20180903, end: 20181009
  23. CALCITRIOL. [Concomitant]
     Active Substance: CALCITRIOL
     Indication: PRODUCT USED FOR UNKNOWN INDICATION
     Dosage: 0.25 MG, QD
     Route: 065
     Dates: start: 2014
  24. PANTOPRAZOLE [Suspect]
     Active Substance: PANTOPRAZOLE
     Indication: PROPHYLAXIS AGAINST GASTROINTESTINAL ULCER
     Dosage: 40 MG, QD
     Route: 065
     Dates: start: 2018
  25. NOVORAPID [Suspect]
     Active Substance: INSULIN ASPART
     Dosage: UNK UNK, UNK
     Route: 065
     Dates: start: 2018
  26. NOVORAPID [Suspect]
     Active Substance: INSULIN ASPART
     Dosage: 24 IN THE MORNING, 18 AT NOON AND 20 IN THE EVENING
     Route: 065
  27. TORASEMIDE [Suspect]
     Active Substance: TORSEMIDE
     Indication: PRODUCT USED FOR UNKNOWN INDICATION
     Dosage: 20 MG, ONCE DAILY (1-1-0)
     Route: 065
     Dates: start: 2012
  28. NOVORAPID [Suspect]
     Active Substance: INSULIN ASPART
     Dosage: UNK UNK, UNK
     Route: 065
     Dates: start: 2012

REACTIONS (14)
  - Rectal tenesmus [Unknown]
  - Chest discomfort [Unknown]
  - Blood glucose increased [Unknown]
  - Peripheral swelling [Unknown]
  - Spinal pain [Unknown]
  - Myalgia [Unknown]
  - Dyspnoea exertional [Unknown]
  - Skin haemorrhage [Unknown]
  - Dyspnoea [Unknown]
  - Muscle spasms [Unknown]
  - Nausea [Unknown]
  - Injection site swelling [Unknown]
  - Pelvic pain [Unknown]
  - Asthenia [Unknown]

NARRATIVE: CASE EVENT DATE: 201809
